FAERS Safety Report 10660914 (Version 2)
Quarter: 2014Q4

REPORT INFORMATION
  Report Type: Spontaneous
  Country: JP (occurrence: JP)
  Receive Date: 20141218
  Receipt Date: 20141218
  Transmission Date: 20150529
  Serious: Yes (Hospitalization, Other)
  Sender: FDA-Public Use
  Company Number: JP-ROCHE-1492779

PATIENT
  Age: 60 Year
  Sex: Male
  Weight: 54 kg

DRUGS (6)
  1. AVASTIN [Suspect]
     Active Substance: BEVACIZUMAB
     Indication: RECTAL CANCER METASTATIC
     Dosage: COMPLETED TREATMENT CYCLE NUMBER: 5
     Route: 041
     Dates: start: 20140617, end: 2014
  2. ELPLAT [Concomitant]
     Active Substance: OXALIPLATIN
     Indication: RECTAL CANCER METASTATIC
     Dosage: UNCERTAIN DOSAGE AND SIX COURSES?MFOLFOX6
     Route: 041
     Dates: start: 20140528, end: 20141112
  3. 5-FU [Concomitant]
     Active Substance: FLUOROURACIL
     Indication: RECTAL CANCER METASTATIC
     Dosage: UNCERTAIN DOSAGE AND SIX COURSES?MFOLFOX
     Route: 040
     Dates: start: 20140528, end: 20141112
  4. 5-FU [Concomitant]
     Active Substance: FLUOROURACIL
     Indication: COLON CANCER
     Dosage: UNCERTAIN DOSAGE AND SIX COURSES?MFOLFOX
     Route: 041
     Dates: start: 20140528, end: 20141112
  5. CALCIUM LEVOFOLINATE [Concomitant]
     Active Substance: LEVOLEUCOVORIN CALCIUM
     Indication: RECTAL CANCER METASTATIC
     Dosage: MFOLFOX
     Route: 041
     Dates: start: 20140528, end: 20141112
  6. AVASTIN [Suspect]
     Active Substance: BEVACIZUMAB
     Route: 041
     Dates: start: 20141112, end: 20141112

REACTIONS (8)
  - Gamma-glutamyltransferase abnormal [Not Recovered/Not Resolved]
  - C-reactive protein increased [Unknown]
  - Aspartate aminotransferase abnormal [Not Recovered/Not Resolved]
  - Alanine aminotransferase abnormal [Not Recovered/Not Resolved]
  - Malignant ascites [Unknown]
  - Ascites [Unknown]
  - Performance status decreased [Unknown]
  - Blood bilirubin increased [Unknown]

NARRATIVE: CASE EVENT DATE: 20141111
